FAERS Safety Report 6154985-6 (Version None)
Quarter: 2009Q2

REPORT INFORMATION
  Report Type: 
  Country: None (occurrence: None)
  Receive Date: 20090410
  Receipt Date: 20090325
  Transmission Date: 20091009
  Serious: Yes (Other)
  Sender: FDA-Public Use
  Company Number: 1000005672

PATIENT
  Age: 72 Year
  Sex: Male

DRUGS (4)
  1. NEBIVOLOL HCL [Suspect]
     Indication: HYPERTENSION
     Dosage: 15 MG (5 MG,3 IN 1 D),ORAL
     Route: 048
  2. TRANXILIUM [Concomitant]
  3. ATACAND [Concomitant]
  4. TAMBOCOR [Concomitant]

REACTIONS (2)
  - DRUG DEPENDENCE [None]
  - OVERDOSE [None]
